FAERS Safety Report 7035229-X (Version None)
Quarter: 2010Q4

REPORT INFORMATION
  Report Type: 
  Country: None (occurrence: None)
  Receive Date: 20101007
  Receipt Date: 20101007
  Transmission Date: 20110411
  Serious: Yes (Other)
  Sender: FDA-Public Use
  Company Number: None

PATIENT
  Age: 64 Year
  Sex: Female
  Weight: 35.3806 kg

DRUGS (1)
  1. SYMBICORT [Suspect]

REACTIONS (1)
  - VISUAL ACUITY REDUCED [None]
